FAERS Safety Report 15975412 (Version 1)
Quarter: 2019Q1

REPORT INFORMATION
  Report Type: Spontaneous
  Country: US (occurrence: US)
  Receive Date: 20190218
  Receipt Date: 20190218
  Transmission Date: 20190418
  Serious: No
  Sender: FDA-Public Use
  Company Number: US-APOTEX-2018AP028461

PATIENT
  Age: 62 Year
  Sex: Male

DRUGS (61)
  1. DESONIDE. [Suspect]
     Active Substance: DESONIDE
     Indication: ANAL PRURITUS
     Dosage: UNK
     Route: 061
  2. METHYLPHENIDATE. [Concomitant]
     Active Substance: METHYLPHENIDATE
     Indication: ATTENTION DEFICIT/HYPERACTIVITY DISORDER
     Dosage: UNK
     Route: 065
  3. CETIRIZINE [Suspect]
     Active Substance: CETIRIZINE HYDROCHLORIDE
     Indication: PRURITUS GENITAL
  4. TRIAMCINOLONE [Suspect]
     Active Substance: TRIAMCINOLONE
     Indication: PRURITUS GENITAL
  5. CAPSAICIN. [Suspect]
     Active Substance: CAPSAICIN
     Indication: ANAL PRURITUS
     Dosage: UNK
     Route: 061
  6. CAPSAICIN. [Suspect]
     Active Substance: CAPSAICIN
     Indication: PRURITUS GENITAL
  7. RIFAMPIN. [Suspect]
     Active Substance: RIFAMPIN
     Indication: ANAL PRURITUS
     Dosage: UNK
     Route: 065
  8. BUPROPION. [Concomitant]
     Active Substance: BUPROPION
     Indication: DEPRESSION
  9. MYCOPHENOLATE [Suspect]
     Active Substance: MYCOPHENOLIC ACID
     Dosage: 3 G, DAILY
     Route: 065
  10. GABAPENTIN. [Suspect]
     Active Substance: GABAPENTIN
     Indication: PRURITUS GENITAL
  11. FLUOCINONIDE. [Suspect]
     Active Substance: FLUOCINONIDE
     Indication: ANAL PRURITUS
     Route: 061
  12. HYDROCORTISONE. [Suspect]
     Active Substance: HYDROCORTISONE
     Indication: PRURITUS GENITAL
  13. TACROLIMUS. [Suspect]
     Active Substance: TACROLIMUS
     Indication: ANAL PRURITUS
     Dosage: UNK
     Route: 061
  14. DOXEPIN [Suspect]
     Active Substance: DOXEPIN
     Indication: PRURITUS GENITAL
  15. HYDROXYZINE [Suspect]
     Active Substance: HYDROXYZINE HYDROCHLORIDE
     Indication: PRURITUS GENITAL
  16. DOXEPIN [Suspect]
     Active Substance: DOXEPIN
     Indication: PRURITUS GENITAL
  17. TACROLIMUS. [Suspect]
     Active Substance: TACROLIMUS
     Indication: PRURITUS GENITAL
  18. MICONAZOLE. [Suspect]
     Active Substance: MICONAZOLE
     Indication: ANAL PRURITUS
     Dosage: UNK
     Route: 061
  19. NYSTATIN. [Suspect]
     Active Substance: NYSTATIN
     Indication: ANTIFUNGAL TREATMENT
  20. ECONAZOLE. [Suspect]
     Active Substance: ECONAZOLE NITRATE
     Indication: ANAL PRURITUS
     Dosage: UNK
     Route: 061
  21. HYDROXYZINE [Suspect]
     Active Substance: HYDROXYZINE HYDROCHLORIDE
     Indication: ANTIALLERGIC THERAPY
  22. CEPHALEXIN                         /00145501/ [Suspect]
     Active Substance: CEPHALEXIN
     Indication: ANTIBIOTIC THERAPY
  23. CEPHALEXIN                         /00145501/ [Suspect]
     Active Substance: CEPHALEXIN
     Indication: PRURITUS GENITAL
  24. HYDROCORTISONE. [Suspect]
     Active Substance: HYDROCORTISONE
     Indication: ANAL PRURITUS
     Dosage: UNK
     Route: 061
  25. CLOTRIMAZOLE. [Suspect]
     Active Substance: CLOTRIMAZOLE
     Indication: ANTIFUNGAL TREATMENT
  26. MICONAZOLE. [Suspect]
     Active Substance: MICONAZOLE
     Indication: PRURITUS GENITAL
  27. HYDROXYZINE [Suspect]
     Active Substance: HYDROXYZINE HYDROCHLORIDE
     Indication: ANAL PRURITUS
     Dosage: UNK
     Route: 065
  28. DOXEPIN [Suspect]
     Active Substance: DOXEPIN
     Indication: ANTIALLERGIC THERAPY
  29. RIFAMPIN. [Suspect]
     Active Substance: RIFAMPIN
     Indication: ANTIBIOTIC THERAPY
  30. TRIAMCINOLONE [Suspect]
     Active Substance: TRIAMCINOLONE
     Indication: ANAL PRURITUS
     Dosage: UNK
     Route: 030
  31. ALBUTEROL                          /00139501/ [Concomitant]
     Active Substance: ALBUTEROL
     Indication: ASTHMA
     Dosage: UNK
     Route: 065
  32. MONTELUKAST [Concomitant]
     Active Substance: MONTELUKAST SODIUM
     Indication: ASTHMA
     Dosage: UNK
     Route: 065
  33. CETIRIZINE [Suspect]
     Active Substance: CETIRIZINE HYDROCHLORIDE
     Indication: ANAL PRURITUS
     Dosage: UNK
     Route: 065
  34. FLUCONAZOLE. [Suspect]
     Active Substance: FLUCONAZOLE
     Indication: ANTIBIOTIC THERAPY
  35. TRIAMCINOLONE [Suspect]
     Active Substance: TRIAMCINOLONE
     Indication: ANAL PRURITUS
     Dosage: UNK
     Route: 061
  36. LIDOCAINE. [Suspect]
     Active Substance: LIDOCAINE
     Indication: ANAL PRURITUS
     Dosage: UNK
     Route: 061
  37. LIDOCAINE. [Suspect]
     Active Substance: LIDOCAINE
     Indication: PRURITUS GENITAL
  38. NYSTATIN. [Suspect]
     Active Substance: NYSTATIN
     Indication: PRURITUS GENITAL
  39. ECONAZOLE. [Suspect]
     Active Substance: ECONAZOLE NITRATE
     Indication: PRURITUS GENITAL
  40. CEPHALEXIN                         /00145501/ [Suspect]
     Active Substance: CEPHALEXIN
     Indication: ANAL PRURITUS
     Dosage: UNK
     Route: 065
  41. MYCOPHENOLATE [Suspect]
     Active Substance: MYCOPHENOLIC ACID
     Indication: DERMATITIS ATOPIC
     Dosage: 2 G, DAILY
     Route: 065
  42. CETIRIZINE [Suspect]
     Active Substance: CETIRIZINE HYDROCHLORIDE
     Indication: ANTIALLERGIC THERAPY
  43. FLUCONAZOLE. [Suspect]
     Active Substance: FLUCONAZOLE
     Indication: ANAL PRURITUS
     Dosage: UNK
     Route: 065
  44. DESONIDE. [Suspect]
     Active Substance: DESONIDE
     Indication: PRURITUS GENITAL
  45. FLUOCINONIDE. [Suspect]
     Active Substance: FLUOCINONIDE
     Indication: PRURITUS GENITAL
  46. DOXEPIN [Suspect]
     Active Substance: DOXEPIN
     Indication: ANAL PRURITUS
     Dosage: UNK
     Route: 061
  47. CLOTRIMAZOLE. [Suspect]
     Active Substance: CLOTRIMAZOLE
     Indication: ANAL PRURITUS
     Dosage: UNK
     Route: 061
  48. CLOTRIMAZOLE. [Suspect]
     Active Substance: CLOTRIMAZOLE
     Indication: PRURITUS GENITAL
  49. ECONAZOLE. [Suspect]
     Active Substance: ECONAZOLE NITRATE
     Indication: ANTIFUNGAL TREATMENT
  50. DOXEPIN [Suspect]
     Active Substance: DOXEPIN
     Indication: ANAL PRURITUS
     Dosage: UNK
     Route: 065
  51. RIFAMPIN. [Suspect]
     Active Substance: RIFAMPIN
     Indication: PRURITUS GENITAL
  52. TRIAMCINOLONE [Suspect]
     Active Substance: TRIAMCINOLONE
     Indication: PRURITUS GENITAL
  53. METHYLPHENIDATE. [Concomitant]
     Active Substance: METHYLPHENIDATE
     Indication: DEPRESSION
  54. BUDESONIDE W/FORMOTEROL [Concomitant]
     Active Substance: BUDESONIDE\FORMOTEROL
     Indication: ASTHMA
     Dosage: UNK
     Route: 065
  55. FLUCONAZOLE. [Suspect]
     Active Substance: FLUCONAZOLE
     Indication: PRURITUS GENITAL
  56. BUDESONIDE. [Suspect]
     Active Substance: BUDESONIDE
     Indication: ANAL PRURITUS
     Dosage: UNK
     Route: 065
  57. BUDESONIDE. [Suspect]
     Active Substance: BUDESONIDE
     Indication: PRURITUS GENITAL
  58. GABAPENTIN. [Suspect]
     Active Substance: GABAPENTIN
     Indication: ANAL PRURITUS
     Dosage: UNK
     Route: 065
  59. MICONAZOLE. [Suspect]
     Active Substance: MICONAZOLE
     Indication: ANTIFUNGAL TREATMENT
  60. NYSTATIN. [Suspect]
     Active Substance: NYSTATIN
     Indication: ANAL PRURITUS
     Dosage: UNK
     Route: 061
  61. BUPROPION. [Concomitant]
     Active Substance: BUPROPION
     Indication: ATTENTION DEFICIT/HYPERACTIVITY DISORDER
     Dosage: UNK
     Route: 065

REACTIONS (2)
  - Upper respiratory tract infection [Unknown]
  - Drug effect incomplete [Unknown]
